FAERS Safety Report 15285492 (Version 1)
Quarter: 2018Q3

REPORT INFORMATION
  Report Type: Spontaneous
  Country: TR (occurrence: TR)
  Receive Date: 20180816
  Receipt Date: 20180816
  Transmission Date: 20181010
  Serious: Yes (Other)
  Sender: FDA-Public Use
  Company Number: TR-FRESENIUS KABI-FK201808658

PATIENT
  Age: 3 Year
  Sex: Male

DRUGS (3)
  1. KETAMINE [Suspect]
     Active Substance: KETAMINE
     Indication: SEDATION
     Route: 042
  2. MIDAZOLAM [Suspect]
     Active Substance: MIDAZOLAM HYDROCHLORIDE
     Indication: PREMEDICATION
     Route: 042
  3. PROPOFOL (MANUFACTURER UNKNOWN) [Suspect]
     Active Substance: PROPOFOL
     Indication: SEDATION
     Route: 042

REACTIONS (2)
  - Drug administered to patient of inappropriate age [Recovered/Resolved]
  - Oxygen saturation decreased [Recovered/Resolved]
